FAERS Safety Report 4707806-X (Version None)
Quarter: 2005Q2

REPORT INFORMATION
  Report Type: 
  Country: None (occurrence: None)
  Receive Date: 20050629
  Receipt Date: 20050315
  Transmission Date: 20051028
  Serious: No
  Sender: FDA-Public Use
  Company Number: 05P-163-0294039-00

PATIENT
  Age: 59 Year
  Sex: Female
  Weight: 68.0396 kg

DRUGS (5)
  1. HUMIRA [Suspect]
     Indication: RHEUMATOID ARTHRITIS
     Dosage: 40 MG, 1 IN 2 WK, SUBCUTANEOUS  (THERAPY DATES: 09/04 - FALL 2004)
     Route: 058
     Dates: start: 20040901, end: 20040101
  2. METHOTREXATE [Concomitant]
  3. RISEDRONATE SODIUM [Concomitant]
  4. PREDNISONE TAB [Concomitant]
  5. FOLIC ACID [Concomitant]

REACTIONS (3)
  - FOOT DEFORMITY [None]
  - HAND DEFORMITY [None]
  - INJECTION SITE PAIN [None]
